FAERS Safety Report 18125506 (Version 1)
Quarter: 2020Q3

REPORT INFORMATION
  Report Type: Other
  Country: FR (occurrence: FR)
  Receive Date: 20200807
  Receipt Date: 20200807
  Transmission Date: 20201103
  Serious: Yes (Life-Threatening, Hospitalization)
  Sender: FDA-Public Use
  Company Number: FR-NOSTRUM LABORATORIES, INC.-2088305

PATIENT
  Age: 78 Year
  Sex: Female

DRUGS (2)
  1. FLUOXETINE HYDROCHLORIDE. [Suspect]
     Active Substance: FLUOXETINE HYDROCHLORIDE
     Indication: DEPRESSION
     Route: 048
  2. TINZAPARIN SODIUM [Interacting]
     Active Substance: TINZAPARIN SODIUM
     Route: 058

REACTIONS (6)
  - Intra-abdominal haemorrhage [Recovered/Resolved]
  - Acute kidney injury [Recovered/Resolved]
  - Labelled drug-drug interaction medication error [Recovered/Resolved]
  - Shock haemorrhagic [Recovered/Resolved]
  - Explorative laparotomy [Recovered/Resolved]
  - Blood loss anaemia [Recovered/Resolved]
